FAERS Safety Report 5089119-2 (Version None)
Quarter: 2006Q3

REPORT INFORMATION
  Report Type: 
  Country: None (occurrence: None)
  Receive Date: 20060825
  Receipt Date: 20060804
  Transmission Date: 20061208
  Serious: Yes (Life-Threatening, Hospitalization, Other)
  Sender: FDA-Public Use
  Company Number: US-BOEHRINGER INGELHEIM PHARMACEUTICALS, INC.-2006-BP-09002BP

PATIENT
  Age: 76 Year
  Sex: Male

DRUGS (13)
  1. ATROVENT HFA [Suspect]
     Indication: DYSPNOEA
     Route: 055
     Dates: start: 20060803, end: 20060803
  2. ATROVENT HFA [Suspect]
     Indication: CHRONIC OBSTRUCTIVE PULMONARY DISEASE
  3. ATROVENT HFA [Suspect]
     Indication: FORCED EXPIRATORY VOLUME DECREASED
  4. SIMVASTATIN [Concomitant]
  5. GEMFIBROZIL [Concomitant]
  6. TERAZOSIN HCL [Concomitant]
  7. METOPROLOL TARTRATE [Concomitant]
  8. OMEPRAZOLE [Concomitant]
  9. ALLOPURINOL [Concomitant]
  10. LISINOPRIL [Concomitant]
  11. METFORMIN HCL [Concomitant]
  12. FELODIPINE [Concomitant]
  13. ALBUTEROL SPIROS [Concomitant]

REACTIONS (1)
  - ANAPHYLACTIC REACTION [None]
